FAERS Safety Report 7676679-8 (Version None)
Quarter: 2011Q3

REPORT INFORMATION
  Report Type: 
  Country: None (occurrence: None)
  Receive Date: 20110809
  Receipt Date: 20110809
  Transmission Date: 20111222
  Serious: Yes (Hospitalization)
  Sender: FDA-Public Use
  Company Number: None

PATIENT
  Sex: Female
  Weight: 70.3075 kg

DRUGS (3)
  1. ALCOHOL WIPE TRIAD ELI LILLY [Suspect]
     Indication: DIABETES MELLITUS
     Dosage: 1 WIPE Q3DAYS TOPICAL WIPE
     Route: 061
     Dates: start: 20101223, end: 20101231
  2. MEDTRONICS INSULIN PUMP [Concomitant]
  3. HUMALOG [Concomitant]

REACTIONS (5)
  - DEHYDRATION [None]
  - ABDOMINAL WALL ABSCESS [None]
  - VOMITING [None]
  - RENAL FAILURE ACUTE [None]
  - NAUSEA [None]
